FAERS Safety Report 20647329 (Version 1)
Quarter: 2022Q1

REPORT INFORMATION
  Report Type: Spontaneous
  Country: CN (occurrence: CN)
  Receive Date: 20220329
  Receipt Date: 20220329
  Transmission Date: 20220423
  Serious: Yes (Other)
  Sender: FDA-Public Use
  Company Number: CN-ABBVIE-22K-035-4335323-00

PATIENT
  Age: 49 Year
  Sex: Female
  Weight: 65 kg

DRUGS (4)
  1. VALPROATE SODIUM [Suspect]
     Active Substance: VALPROATE SODIUM
     Indication: Prophylaxis
     Route: 048
     Dates: start: 20200902, end: 20200922
  2. VALPROATE SODIUM [Suspect]
     Active Substance: VALPROATE SODIUM
     Dosage: DOSE DECREASED
     Route: 048
     Dates: start: 20200923
  3. GLICLAZIDE [Concomitant]
     Active Substance: GLICLAZIDE
     Indication: Product used for unknown indication
     Dates: start: 20200902, end: 20200922
  4. QUETIAPINE FUMARATE [Concomitant]
     Active Substance: QUETIAPINE FUMARATE
     Indication: Product used for unknown indication
     Dates: start: 20200902, end: 20200922

REACTIONS (2)
  - White blood cell count decreased [Recovering/Resolving]
  - Neutrophil count decreased [Recovering/Resolving]

NARRATIVE: CASE EVENT DATE: 20200922
